FAERS Safety Report 15866498 (Version 1)
Quarter: 2019Q1

REPORT INFORMATION
  Report Type: Spontaneous
  Country: FR (occurrence: FR)
  Receive Date: 20190125
  Receipt Date: 20190125
  Transmission Date: 20190417
  Serious: Yes (Hospitalization)
  Sender: FDA-Public Use
  Company Number: FR-AUROBINDO-AUR-APL-2019-004368

PATIENT
  Age: 5 Day
  Sex: Female
  Weight: 3.81 kg

DRUGS (4)
  1. OXAZEPAM. [Suspect]
     Active Substance: OXAZEPAM
     Indication: ANXIETY
     Dosage: 150 MILLIGRAM, DAILY
     Route: 064
     Dates: end: 20171216
  2. SERTRALINE [Suspect]
     Active Substance: SERTRALINE HYDROCHLORIDE
     Indication: AGORAPHOBIA
     Dosage: 200 MILLIGRAM, DAILY
     Route: 064
     Dates: end: 20171216
  3. LORMETAZEPAM [Suspect]
     Active Substance: LORMETAZEPAM
     Indication: INSOMNIA
     Dosage: 2 MILLIGRAM, DAILY
     Route: 064
     Dates: end: 20171216
  4. LORAZEPAM. [Suspect]
     Active Substance: LORAZEPAM
     Indication: ANXIETY
     Dosage: 7.5 MILLIGRAM, DAILY
     Route: 064
     Dates: end: 20171216

REACTIONS (2)
  - Withdrawal syndrome [Recovered/Resolved]
  - Foetal exposure during pregnancy [Unknown]

NARRATIVE: CASE EVENT DATE: 20171221
